FAERS Safety Report 24382112 (Version 1)
Quarter: 2024Q4

REPORT INFORMATION
  Report Type: Spontaneous
  Country: CN (occurrence: CN)
  Receive Date: 20241001
  Receipt Date: 20241001
  Transmission Date: 20250115
  Serious: Yes (Hospitalization)
  Sender: ASTELLAS
  Company Number: CN-ASTELLAS-2024-AER-009570

PATIENT
  Age: 55 Year
  Sex: Female
  Weight: 43 kg

DRUGS (4)
  1. PROGRAF [Interacting]
     Active Substance: TACROLIMUS
     Indication: Renal transplant
     Route: 065
     Dates: start: 20240921, end: 20240923
  2. OMEPRAZOLE SODIUM [Interacting]
     Active Substance: OMEPRAZOLE SODIUM
     Indication: Gastrooesophageal reflux disease
     Route: 042
     Dates: start: 20240919, end: 20240924
  3. SODIUM CHLORIDE [Concomitant]
     Active Substance: SODIUM CHLORIDE
     Indication: Product used for unknown indication
     Route: 065
     Dates: start: 20240919, end: 20240924
  4. SODIUM CHLORIDE [Concomitant]
     Active Substance: SODIUM CHLORIDE
     Route: 065
     Dates: start: 20240921, end: 20240923

REACTIONS (2)
  - Immunosuppressant drug level increased [Recovering/Resolving]
  - Drug interaction [Recovering/Resolving]

NARRATIVE: CASE EVENT DATE: 20240923
